FAERS Safety Report 19673381 (Version 4)
Quarter: 2021Q3

REPORT INFORMATION
  Report Type: Spontaneous
  Country: FR (occurrence: FR)
  Receive Date: 20210809
  Receipt Date: 20210903
  Transmission Date: 20211014
  Serious: Yes (Death, Other)
  Sender: FDA-Public Use
  Company Number: FR-AUROBINDO-AUR-APL-2021-033414

PATIENT
  Age: 90 Year
  Sex: Male

DRUGS (11)
  1. METFORMIN [Suspect]
     Active Substance: METFORMIN HYDROCHLORIDE
     Indication: WRONG PATIENT
     Dosage: 1 GRAM, ONCE A DAY(1 GRAM (1 TOTAL))
     Route: 048
     Dates: start: 20210707, end: 20210707
  2. NEBIVOLOL HYDROCHLORIDE [Concomitant]
     Active Substance: NEBIVOLOL HYDROCHLORIDE
     Indication: PRODUCT USED FOR UNKNOWN INDICATION
     Dosage: UNK
     Route: 065
  3. LASILIX FAIBLE [Concomitant]
     Active Substance: FUROSEMIDE
     Indication: PRODUCT USED FOR UNKNOWN INDICATION
     Dosage: UNK
     Route: 065
  4. RAMIPRIL. [Suspect]
     Active Substance: RAMIPRIL
     Indication: WRONG PATIENT
     Dosage: 2.5 MILLIGRAM, ONCE A DAY(2.5 MILLIGRAM (1 TOTAL))
     Route: 048
     Dates: start: 20210707, end: 20210707
  5. TAMSULOSIN [Suspect]
     Active Substance: TAMSULOSIN
     Indication: WRONG PATIENT
     Dosage: 0.4 MILLIGRAM, ONCE A DAY(0.4 MILLIGRAM (1 TOTAL))
     Route: 048
     Dates: start: 20210707, end: 20210707
  6. XARELTO [Suspect]
     Active Substance: RIVAROXABAN
     Indication: ARRHYTHMIA
     Dosage: 10 MILLIGRAM, ONCE A DAY(10 MILLIGRAM (1 TOTAL))
     Route: 048
     Dates: start: 20210707, end: 20210707
  7. MACROGOL [Concomitant]
     Active Substance: POLYETHYLENE GLYCOLS
     Indication: PRODUCT USED FOR UNKNOWN INDICATION
     Dosage: UNK
     Route: 065
  8. DOLIPRANE [Suspect]
     Active Substance: ACETAMINOPHEN
     Indication: PRODUCT USED FOR UNKNOWN INDICATION
     Dosage: 1 GRAM, ONCE A DAY(1 GRAM (1 TOTAL))
     Route: 048
     Dates: start: 20210707, end: 20210707
  9. ELIQUIS [Suspect]
     Active Substance: APIXABAN
     Indication: WRONG PATIENT
     Dosage: 5 MILLIGRAM, ONCE A DAY(5 MILLIGRAM (1 TOTAL))
     Route: 048
     Dates: start: 20210707, end: 20210707
  10. LEVOTHYROXIN [Concomitant]
     Active Substance: LEVOTHYROXINE
     Indication: PRODUCT USED FOR UNKNOWN INDICATION
     Dosage: UNK
     Route: 065
  11. IRBESARTAN HYDROCHLORIDE [Concomitant]
     Active Substance: IRBESARTAN
     Indication: PRODUCT USED FOR UNKNOWN INDICATION
     Dosage: UNK
     Route: 065

REACTIONS (3)
  - Death [Fatal]
  - Sudden death [Fatal]
  - Wrong patient [Fatal]

NARRATIVE: CASE EVENT DATE: 20210707
